FAERS Safety Report 7524909-5 (Version None)
Quarter: 2011Q2

REPORT INFORMATION
  Report Type: 
  Country: None (occurrence: None)
  Receive Date: 20110606
  Receipt Date: 20110516
  Transmission Date: 20111010
  Serious: Yes (Death)
  Sender: FDA-Public Use
  Company Number: JP-BAYER-201015445BYL

PATIENT
  Age: 74 Year
  Sex: Male

DRUGS (2)
  1. NEXAVAR [Suspect]
     Indication: RENAL CELL CARCINOMA
     Dosage: 400 MG, QD
     Route: 048
     Dates: start: 20101018, end: 20110511
  2. NEXAVAR [Suspect]

REACTIONS (3)
  - HYPOPHOSPHATAEMIA [None]
  - HYPERTENSION [None]
  - DEATH [None]
